FAERS Safety Report 22798826 (Version 5)
Quarter: 2023Q4

REPORT INFORMATION
  Report Type: Spontaneous
  Country: JP (occurrence: JP)
  Receive Date: 20230808
  Receipt Date: 20231023
  Transmission Date: 20240109
  Serious: No
  Sender: FDA-Public Use
  Company Number: JP-PFIZER INC-PV202300130840

PATIENT
  Age: 14 Year
  Sex: Male
  Weight: 40.6 kg

DRUGS (3)
  1. NGENLA [Suspect]
     Active Substance: SOMATROGON-GHLA
     Indication: Growth hormone deficiency
     Dosage: UNK
     Dates: start: 20230720, end: 20230720
  2. NGENLA [Suspect]
     Active Substance: SOMATROGON-GHLA
     Dosage: 15 MG
     Route: 058
     Dates: start: 20230727, end: 20230727
  3. NGENLA [Suspect]
     Active Substance: SOMATROGON-GHLA
     Dosage: 27 MG, WEEKLY
     Route: 058
     Dates: start: 20230803

REACTIONS (5)
  - Needle issue [Unknown]
  - Incorrect dose administered [Unknown]
  - Injection site pain [Recovering/Resolving]
  - Anxiety [Unknown]
  - Injection site swelling [Unknown]

NARRATIVE: CASE EVENT DATE: 20230727
